FAERS Safety Report 12591798 (Version 1)
Quarter: 2016Q3

REPORT INFORMATION
  Report Type: Spontaneous
  Country: US (occurrence: None)
  Receive Date: 20160725
  Receipt Date: 20160725
  Transmission Date: 20161109
  Serious: No
  Sender: FDA-Public Use
  Company Number: None

PATIENT
  Age: 61 Year
  Sex: Female

DRUGS (5)
  1. COPAXONE [Suspect]
     Active Substance: GLATIRAMER ACETATE
     Indication: BREAST CANCER IN SITU
  2. COPAXONE [Suspect]
     Active Substance: GLATIRAMER ACETATE
     Indication: THYROID CANCER
  3. COPAXONE [Suspect]
     Active Substance: GLATIRAMER ACETATE
     Indication: MULTIPLE SCLEROSIS
  4. COPAXONE [Suspect]
     Active Substance: GLATIRAMER ACETATE
     Indication: GOITRE
  5. COPAXONE [Suspect]
     Active Substance: GLATIRAMER ACETATE
     Indication: BREAST CANCER

REACTIONS (1)
  - Constipation [None]

NARRATIVE: CASE EVENT DATE: 20160719
